FAERS Safety Report 6624310-2 (Version None)
Quarter: 2010Q1

REPORT INFORMATION
  Report Type: 
  Country: None (occurrence: None)
  Receive Date: 20100310
  Receipt Date: 20091106
  Transmission Date: 20100710
  Serious: No
  Sender: FDA-Public Use
  Company Number: US-BIOGENIDEC-2009BI035983

PATIENT
  Age: 52 Year
  Sex: Female

DRUGS (3)
  1. AVONEX [Suspect]
     Indication: MULTIPLE SCLEROSIS
     Route: 030
     Dates: start: 20010101, end: 20030101
  2. AVONEX [Suspect]
     Route: 030
     Dates: start: 20030101
  3. PNEUMOVAX 23 [Concomitant]
     Indication: PNEUMOCOCCAL IMMUNISATION
     Route: 030

REACTIONS (5)
  - INFLUENZA LIKE ILLNESS [None]
  - VACCINATION SITE ERYTHEMA [None]
  - VACCINATION SITE INDURATION [None]
  - VACCINATION SITE INFLAMMATION [None]
  - VACCINATION SITE PAIN [None]
